FAERS Safety Report 20246001 (Version 1)
Quarter: 2021Q4

REPORT INFORMATION
  Report Type: Spontaneous
  Country: US (occurrence: None)
  Receive Date: 20211228
  Receipt Date: 20211228
  Transmission Date: 20220303
  Serious: No
  Sender: FDA-Public Use
  Company Number: None

PATIENT
  Age: 61 Year
  Sex: Male
  Weight: 125.55 kg

DRUGS (1)
  1. FOSAPREPITANT [Suspect]
     Active Substance: FOSAPREPITANT
     Indication: Prophylaxis of nausea and vomiting
     Dosage: ONCE
     Route: 042
     Dates: start: 20211227, end: 20211227

REACTIONS (4)
  - Hypersensitivity [None]
  - Back pain [None]
  - Flushing [None]
  - Nausea [None]

NARRATIVE: CASE EVENT DATE: 20211227
